FAERS Safety Report 6824202-X (Version None)
Quarter: 2010Q3

REPORT INFORMATION
  Report Type: 
  Country: None (occurrence: None)
  Receive Date: 20100708
  Receipt Date: 20061009
  Transmission Date: 20110219
  Serious: No
  Sender: FDA-Public Use
  Company Number: US-PFIZER INC-2006125960

PATIENT
  Sex: Female
  Weight: 62.6 kg

DRUGS (3)
  1. CHANTIX [Suspect]
     Indication: EX-TOBACCO USER
     Dates: start: 20060101
  2. WELLBUTRIN XL [Concomitant]
  3. MAXZIDE [Concomitant]
     Indication: HYPERTENSION

REACTIONS (2)
  - ASTHENIA [None]
  - NERVOUSNESS [None]
